FAERS Safety Report 4363647-7 (Version None)
Quarter: 2004Q2

REPORT INFORMATION
  Report Type: 
  Country: None (occurrence: None)
  Receive Date: 20040517
  Receipt Date: 20040413
  Transmission Date: 20050107
  Serious: No
  Sender: FDA-Public Use
  Company Number: S04-USA-02106-01

PATIENT
  Age: 89 Year
  Sex: Female

DRUGS (6)
  1. NAMENDA [Suspect]
     Indication: DEMENTIA
     Dosage: 5 MG QD PO
     Route: 048
     Dates: start: 20040410
  2. ARICEPT [Concomitant]
  3. COUMADIN [Concomitant]
  4. ZOCOR [Concomitant]
  5. RESTORIL [Concomitant]
  6. VITAMIN B COMPLEX CAP [Concomitant]

REACTIONS (6)
  - ANAL DISCOMFORT [None]
  - ASTHENIA [None]
  - HYPERSOMNIA [None]
  - LOOSE STOOLS [None]
  - MOBILITY DECREASED [None]
  - SNEEZING [None]
